FAERS Safety Report 9795779 (Version 1)
Quarter: 2014Q1

REPORT INFORMATION
  Report Type: Spontaneous
  Country: GB (occurrence: GB)
  Receive Date: 20140103
  Receipt Date: 20140103
  Transmission Date: 20141002
  Serious: Yes (Disabling, Other)
  Sender: FDA-Public Use
  Company Number: PHFR2013GB007450

PATIENT
  Age: 69 Year
  Sex: Female

DRUGS (2)
  1. LETROZOLE [Suspect]
     Indication: BREAST CANCER
     Dosage: 2.5 MG, QD
     Route: 048
     Dates: start: 20101116, end: 20131030
  2. TAMOXIFEN [Concomitant]
     Dosage: UNK UKN, UNK
     Dates: start: 2008, end: 2010

REACTIONS (5)
  - Axonal neuropathy [Not Recovered/Not Resolved]
  - Neuropathy peripheral [Not Recovered/Not Resolved]
  - Decreased vibratory sense [Unknown]
  - Loss of proprioception [Unknown]
  - Balance disorder [Unknown]
